FAERS Safety Report 11037504 (Version 2)
Quarter: 2015Q2

REPORT INFORMATION
  Report Type: Spontaneous
  Country: FR (occurrence: FR)
  Receive Date: 20150416
  Receipt Date: 20150429
  Transmission Date: 20150821
  Serious: Yes (Other)
  Sender: FDA-Public Use
  Company Number: FR-009507513-1504FRA014624

PATIENT
  Age: 13 Year
  Sex: Female
  Weight: 33 kg

DRUGS (10)
  1. MESNA. [Concomitant]
     Active Substance: MESNA
     Dosage: 5700 MG, QD
     Route: 042
     Dates: start: 20130416, end: 20130417
  2. PLITICAN [Concomitant]
     Active Substance: ALIZAPRIDE HYDROCHLORIDE
     Indication: PROPHYLAXIS OF NAUSEA AND VOMITING
  3. EMEND [Suspect]
     Active Substance: APREPITANT
     Indication: PROPHYLAXIS OF NAUSEA AND VOMITING
     Dosage: 125 MG, ONCE ON DAY ONE
     Route: 048
     Dates: start: 20130416, end: 20130416
  4. VINCRISTINE SULFATE. [Concomitant]
     Active Substance: VINCRISTINE SULFATE
     Dosage: 2 MG, QD
     Route: 042
     Dates: start: 20130416, end: 20130416
  5. ACTINOMYCIN C3 [Concomitant]
     Dosage: 2000 MICROGRAM, QD
     Dates: start: 20130416
  6. IFOSFAMIDE. [Suspect]
     Active Substance: IFOSFAMIDE
     Indication: OSTEOSARCOMA
     Dosage: 3G/M2, (2 BOTTLES OF 2000 MG/50 ML), 4800 MG QD
     Route: 042
     Dates: start: 20130416, end: 20130417
  7. IFOSFAMIDE. [Suspect]
     Active Substance: IFOSFAMIDE
     Dosage: 3 G/M2 ONE BOTTLE OF 1000MG/25 ML, 4800 MG QD
     Route: 042
     Dates: start: 20130416, end: 20130417
  8. ONDANSETRON [Concomitant]
     Active Substance: ONDANSETRON
     Indication: PROPHYLAXIS OF NAUSEA AND VOMITING
  9. EMEND [Suspect]
     Active Substance: APREPITANT
     Dosage: 80 MG, QD (PER DAY OF CHEMOTHERAPY)
     Route: 048
     Dates: start: 20130417, end: 20130418
  10. DOXORUBICIN HYDROCHLORIDE. [Concomitant]
     Active Substance: DOXORUBICIN HYDROCHLORIDE
     Dosage: 48 MG, QD
     Route: 042
     Dates: start: 20130416, end: 20130417

REACTIONS (2)
  - Seizure [Recovered/Resolved]
  - Encephalopathy [Recovered/Resolved]

NARRATIVE: CASE EVENT DATE: 20130416
